FAERS Safety Report 9929914 (Version 1)
Quarter: 2014Q1

REPORT INFORMATION
  Report Type: Spontaneous
  Country: EG (occurrence: EG)
  Receive Date: 20140227
  Receipt Date: 20140227
  Transmission Date: 20141002
  Serious: Yes (Hospitalization)
  Sender: FDA-Public Use
  Company Number: EG-ELI_LILLY_AND_COMPANY-EG201402006591

PATIENT
  Sex: Male

DRUGS (3)
  1. HUMULIN 30% REGULAR, 70% NPH [Suspect]
     Indication: DIABETES MELLITUS
     Dosage: 40 IU, QD
     Route: 058
     Dates: start: 201302
  2. HUMULIN 30% REGULAR, 70% NPH [Suspect]
     Dosage: 36 IU, EACH EVENING
     Route: 058
     Dates: start: 201302
  3. HUMULIN 30% REGULAR, 70% NPH [Suspect]
     Dosage: 44 IU, QD
     Route: 058

REACTIONS (2)
  - Hemiplegia [Not Recovered/Not Resolved]
  - Hyperglycaemia [Recovered/Resolved]
